FAERS Safety Report 12738477 (Version 18)
Quarter: 2019Q1

REPORT INFORMATION
  Report Type: Spontaneous
  Country: US (occurrence: US)
  Receive Date: 20160913
  Receipt Date: 20190122
  Transmission Date: 20190417
  Serious: Yes (Hospitalization)
  Sender: FDA-Public Use
  Company Number: US-ACTELION-A-NJ2016-132776

PATIENT
  Age: 75 Year
  Sex: Male
  Weight: 79.37 kg

DRUGS (7)
  1. VELETRI [Suspect]
     Active Substance: EPOPROSTENOL
     Dosage: 29 NG/KG, PER MIN
     Route: 042
  2. VELETRI [Suspect]
     Active Substance: EPOPROSTENOL
     Dosage: 25 NG/KG, PER MIN
     Route: 042
  3. VELETRI [Suspect]
     Active Substance: EPOPROSTENOL
     Dosage: 22 NG/KG, PER MIN
     Route: 042
     Dates: start: 20150203
  4. OPSUMIT [Suspect]
     Active Substance: MACITENTAN
     Indication: PULMONARY ARTERIAL HYPERTENSION
     Dosage: 10 MG, QD
     Route: 048
     Dates: start: 20140207
  5. UMECLIDINIUM [Concomitant]
     Active Substance: UMECLIDINIUM BROMIDE
  6. VELETRI [Suspect]
     Active Substance: EPOPROSTENOL
     Indication: PULMONARY ARTERIAL HYPERTENSION
     Dosage: 29 NG/KG, PER MIN
     Route: 042
  7. REVATIO [Concomitant]
     Active Substance: SILDENAFIL CITRATE

REACTIONS (37)
  - Hypoxia [Unknown]
  - Rhinorrhoea [Unknown]
  - Dyspepsia [Unknown]
  - Catheter site extravasation [Unknown]
  - Influenza like illness [Unknown]
  - Arthritis [Unknown]
  - Vomiting [Unknown]
  - Diarrhoea [Unknown]
  - Headache [Unknown]
  - Pyrexia [Unknown]
  - Nasopharyngitis [Unknown]
  - Catheter management [Unknown]
  - Product dose omission [Unknown]
  - Heart rate increased [Unknown]
  - Hypersensitivity [Unknown]
  - Abdominal pain lower [Unknown]
  - Dyspnoea [Unknown]
  - Pain [Unknown]
  - Dyspnoea exertional [Not Recovered/Not Resolved]
  - Muscle atrophy [Recovering/Resolving]
  - Device breakage [Unknown]
  - Catheter placement [Unknown]
  - Device dislocation [Unknown]
  - Bronchitis [Unknown]
  - Sinus disorder [Unknown]
  - Nasal congestion [Unknown]
  - Epistaxis [Unknown]
  - Myalgia [Unknown]
  - Back pain [Not Recovered/Not Resolved]
  - Vascular device infection [Unknown]
  - Nausea [Unknown]
  - Catheter site discharge [Unknown]
  - Lacrimation increased [Unknown]
  - Oxygen saturation decreased [Unknown]
  - Unevaluable event [Unknown]
  - Paranasal sinus discomfort [Unknown]
  - Sneezing [Unknown]

NARRATIVE: CASE EVENT DATE: 20161020
